FAERS Safety Report 8590331-6 (Version None)
Quarter: 2012Q3

REPORT INFORMATION
  Report Type: 
  Country: None (occurrence: None)
  Receive Date: 20120813
  Receipt Date: 20120807
  Transmission Date: 20120928
  Serious: Yes (Other)
  Sender: FDA-Public Use
  Company Number: BR-JNJFOC-20120800926

PATIENT

DRUGS (4)
  1. LISTERINE ZERO [Suspect]
     Indication: EXPOSURE DURING BREAST FEEDING
     Route: 063
     Dates: start: 20120728
  2. CORTICORTEN [Suspect]
     Indication: EXPOSURE DURING BREAST FEEDING
     Route: 063
     Dates: start: 20030101
  3. NEOMYCIN SULFATE [Suspect]
     Indication: EXPOSURE DURING BREAST FEEDING
     Route: 063
     Dates: start: 20120728
  4. AEROLIND [Suspect]
     Indication: EXPOSURE DURING BREAST FEEDING
     Route: 063
     Dates: start: 20090101

REACTIONS (2)
  - BREAST FEEDING [None]
  - CARDIOVASCULAR DISORDER [None]
